FAERS Safety Report 16780886 (Version 1)
Quarter: 2019Q3

REPORT INFORMATION
  Report Type: Spontaneous
  Country: CA (occurrence: CA)
  Receive Date: 20190906
  Receipt Date: 20190906
  Transmission Date: 20191005
  Serious: Yes (Other)
  Sender: FDA-Public Use
  Company Number: CA-PFIZER INC-2019381186

PATIENT
  Age: 63 Year
  Sex: Female
  Weight: 74.83 kg

DRUGS (4)
  1. PANTOLOC [PANTOPRAZOLE] [Concomitant]
     Active Substance: PANTOPRAZOLE SODIUM
     Dosage: UNK
  2. SYNTHROID [Concomitant]
     Active Substance: LEVOTHYROXINE SODIUM
     Dosage: UNK
  3. HYZAAR [Concomitant]
     Active Substance: HYDROCHLOROTHIAZIDE\LOSARTAN POTASSIUM
     Dosage: UNK
  4. CELEBREX [Suspect]
     Active Substance: CELECOXIB
     Indication: CARPAL TUNNEL SYNDROME
     Dosage: 200 MG, AS NEEDED
     Route: 065

REACTIONS (7)
  - Disorientation [Recovered/Resolved]
  - Muscle twitching [Recovered/Resolved]
  - Palpitations [Recovered/Resolved]
  - Speech disorder [Recovered/Resolved]
  - Off label use [Unknown]
  - Confusional state [Recovered/Resolved]
  - Product use in unapproved indication [Unknown]
